FAERS Safety Report 5269687-8 (Version None)
Quarter: 2007Q1

REPORT INFORMATION
  Report Type: 
  Country: None (occurrence: None)
  Receive Date: 20061218
  Receipt Date: 20060510
  Transmission Date: 20070707
  Serious: No
  Sender: FDA-Public Use
  Company Number: US200605002392

PATIENT
  Sex: Male

DRUGS (1)
  1. HUMALOG [Suspect]
     Dosage: AS NEEDED
     Dates: start: 20010101

REACTIONS (2)
  - BLOOD GLUCOSE INCREASED [None]
  - FOREIGN BODY TRAUMA [None]
